FAERS Safety Report 8081218-6 (Version None)
Quarter: 2012Q1

REPORT INFORMATION
  Report Type: 
  Country: None (occurrence: None)
  Receive Date: 20120130
  Receipt Date: 20120123
  Transmission Date: 20120608
  Serious: Yes (Other)
  Sender: FDA-Public Use
  Company Number: US-PFIZER INC-2012005035

PATIENT
  Sex: Female
  Weight: 86.168 kg

DRUGS (4)
  1. CELEBREX [Suspect]
     Indication: PAIN
     Dosage: 100 MG, 2X/DAY
     Route: 048
     Dates: start: 20111208
  2. IBUPROFEN [Suspect]
     Indication: PAIN
     Dosage: UNK
  3. ACETAMINOPHEN [Suspect]
     Indication: PAIN
     Dosage: 1 TABLET OF UNKNOWN DOSE EVERY 6 HOURS
     Route: 048
  4. TRAZODONE [Concomitant]
     Dosage: UNK

REACTIONS (4)
  - GASTROINTESTINAL HAEMORRHAGE [None]
  - SLEEP DISORDER [None]
  - ARTHRALGIA [None]
  - DRUG INEFFECTIVE [None]
